FAERS Safety Report 4808711-0 (Version None)
Quarter: 2005Q4

REPORT INFORMATION
  Report Type: 
  Country: None (occurrence: None)
  Receive Date: 20051021
  Receipt Date: 20050928
  Transmission Date: 20060501
  Serious: No
  Sender: FDA-Public Use
  Company Number: DE_040914375

PATIENT
  Age: 49 Year
  Sex: Female

DRUGS (5)
  1. ZYPREXA [Suspect]
     Indication: SCHIZOAFFECTIVE DISORDER
     Dosage: 2.5 MG DAY09
     Route: 048
  2. ATOSIL                     (ISOPROMETHAZINE HYDROCHLORIDE) [Concomitant]
  3. TAXILAN (PERAZINE) [Concomitant]
  4. LITHIUM [Concomitant]
  5. ANTI-LIPIDE [Concomitant]

REACTIONS (1)
  - LEUKOPENIA [None]
